FAERS Safety Report 9748444 (Version 1)
Quarter: 2013Q4

REPORT INFORMATION
  Report Type: Spontaneous
  Country: US (occurrence: None)
  Receive Date: 20131211
  Receipt Date: 20131211
  Transmission Date: 20140711
  Serious: Yes (Hospitalization, Other)
  Sender: FDA-Public Use
  Company Number: None

PATIENT
  Age: 5 Year
  Sex: Female

DRUGS (3)
  1. CYTOGAM [Suspect]
     Indication: CYTOMEGALOVIRUS INFECTION
     Dosage: 2500 MG, EVERY OTHER WEEK, INTRAVENOUS
     Route: 042
     Dates: start: 20131127, end: 20131127
  2. CYTOGAM [Suspect]
     Indication: PROPHYLAXIS
     Dosage: 2500 MG, EVERY OTHER WEEK, INTRAVENOUS
     Route: 042
     Dates: start: 20131127, end: 20131127
  3. IVIG [Suspect]
     Indication: INFECTION PROPHYLAXIS
     Route: 042
     Dates: start: 20131008, end: 20131022

REACTIONS (10)
  - Haemoglobin decreased [None]
  - Chills [None]
  - Nausea [None]
  - Vomiting [None]
  - Anxiety [None]
  - Pyrexia [None]
  - Haematuria [None]
  - Haemolysis [None]
  - Mental status changes [None]
  - Product quality issue [None]
